FAERS Safety Report 15261958 (Version 7)
Quarter: 2020Q1

REPORT INFORMATION
  Report Type: Spontaneous
  Country: JP (occurrence: JP)
  Receive Date: 20180809
  Receipt Date: 20200207
  Transmission Date: 20200409
  Serious: Yes (Death, Hospitalization)
  Sender: FDA-Public Use
  Company Number: JP-EISAI MEDICAL RESEARCH-EC-2018-043891

PATIENT
  Age: 79 Year
  Sex: Male
  Weight: 44 kg

DRUGS (2)
  1. THYRADIN S [Concomitant]
     Active Substance: LEVOTHYROXINE SODIUM
     Indication: PRODUCT USED FOR UNKNOWN INDICATION
     Dosage: DOSE AND FREQUENCY UNKNOWN
     Route: 065
     Dates: start: 20180627
  2. LENVIMA [Suspect]
     Active Substance: LENVATINIB
     Indication: HEPATIC CANCER STAGE IV
     Route: 048
     Dates: start: 20180611, end: 20180726

REACTIONS (5)
  - Interstitial lung disease [Fatal]
  - Decreased appetite [Not Recovered/Not Resolved]
  - Hypertension [Recovered/Resolved]
  - Diarrhoea [Unknown]
  - Hypothyroidism [Recovered/Resolved]

NARRATIVE: CASE EVENT DATE: 2018
